FAERS Safety Report 4411271-X (Version None)
Quarter: 2004Q3

REPORT INFORMATION
  Report Type: 
  Country: None (occurrence: None)
  Receive Date: 20040727
  Receipt Date: 20040722
  Transmission Date: 20050211
  Serious: Yes (Hospitalization, Other)
  Sender: FDA-Public Use
  Company Number: ESWYE926823JUL04

PATIENT
  Age: 68 Year
  Sex: Male

DRUGS (1)
  1. RAPAMUNE [Suspect]
     Indication: RENAL TRANSPLANT
     Dosage: 5 MG 1X PER 24 HR ORAL
     Route: 048
     Dates: start: 20040506, end: 20040714

REACTIONS (1)
  - KIDNEY TRANSPLANT REJECTION [None]
